FAERS Safety Report 7209822-5 (Version None)
Quarter: 2011Q1

REPORT INFORMATION
  Report Type: 
  Country: None (occurrence: None)
  Receive Date: 20110104
  Receipt Date: 20101111
  Transmission Date: 20110831
  Serious: Yes (Other)
  Sender: FDA-Public Use
  Company Number: GB-AMGEN-GBRCT2010005212

PATIENT

DRUGS (1)
  1. ETANERCEPT [Suspect]
     Dosage: UNK
     Dates: start: 20031002, end: 20040115

REACTIONS (1)
  - MULTIPLE MYELOMA [None]
